FAERS Safety Report 5971745-7 (Version None)
Quarter: 2008Q4

REPORT INFORMATION
  Report Type: 
  Country: None (occurrence: None)
  Receive Date: 20081125
  Receipt Date: 20081112
  Transmission Date: 20090506
  Serious: Yes (Hospitalization)
  Sender: FDA-Public Use
  Company Number: 237215J08USA

PATIENT
  Age: 45 Year
  Sex: Female
  Weight: 97.5234 kg

DRUGS (6)
  1. REBIF [Suspect]
     Indication: MULTIPLE SCLEROSIS
     Dosage: 44 MCG, 3 IN 1 WEEKS, SUBCUTANEOUS
     Route: 058
     Dates: start: 20080103, end: 20080101
  2. REBIF [Suspect]
     Indication: MULTIPLE SCLEROSIS
     Dosage: 44 MCG, 3 IN 1 WEEKS, SUBCUTANEOUS
     Route: 058
     Dates: start: 20080815
  3. BACLOFEN [Concomitant]
  4. ALEVE (CAPLET) [Concomitant]
  5. OSCAL (CALCIUM CARBONATE) [Concomitant]
  6. ONE-A-DAY WOMENS (ONE-A-DAY /00156401/) [Concomitant]

REACTIONS (2)
  - GRAND MAL CONVULSION [None]
  - TACHYCARDIA [None]
